FAERS Safety Report 23658754 (Version 1)
Quarter: 2024Q1

REPORT INFORMATION
  Report Type: Spontaneous
  Country: US (occurrence: US)
  Receive Date: 20240321
  Receipt Date: 20240321
  Transmission Date: 20240410
  Serious: No
  Sender: FDA-Public Use
  Company Number: US-MYLANLABS-2024M1021575

PATIENT
  Age: 83 Year
  Sex: Female
  Weight: 58.97 kg

DRUGS (2)
  1. TYRVAYA [Suspect]
     Active Substance: VARENICLINE TARTRATE
     Indication: Dry eye
     Dosage: UNK, BID
     Route: 065
     Dates: start: 20240301
  2. ENBREL [Concomitant]
     Active Substance: ETANERCEPT
     Dosage: BEGIN TAKING IT AGAIN NEXT WEEK
     Route: 065

REACTIONS (2)
  - COVID-19 [Unknown]
  - Product dose omission issue [Unknown]

NARRATIVE: CASE EVENT DATE: 20240303
